FAERS Safety Report 10866878 (Version 1)
Quarter: 2015Q1

REPORT INFORMATION
  Report Type: Spontaneous
  Country: US (occurrence: US)
  Receive Date: 20150225
  Receipt Date: 20150225
  Transmission Date: 20150721
  Serious: No
  Sender: FDA-Public Use
  Company Number: US-009507513-1502USA010870

PATIENT
  Sex: Female

DRUGS (1)
  1. NUVARING [Suspect]
     Active Substance: ETHINYL ESTRADIOL\ETONOGESTREL
     Dosage: RING IN PLACE FOR 5 WEEKS AND REMOVED FOR A 1-WEEK RING-FREE INTERVAL
     Route: 067

REACTIONS (2)
  - No adverse event [Unknown]
  - Inappropriate schedule of drug administration [Unknown]
